FAERS Safety Report 4341554-3 (Version None)
Quarter: 2004Q2

REPORT INFORMATION
  Report Type: 
  Country: None (occurrence: None)
  Receive Date: 20040415
  Receipt Date: 20040406
  Transmission Date: 20050107
  Serious: Yes (Disabling)
  Sender: FDA-Public Use
  Company Number: K200400507

PATIENT
  Age: 79 Year
  Sex: Female

DRUGS (6)
  1. ALTACE [Suspect]
     Indication: CARDIAC FAILURE CONGESTIVE
     Dosage: 5 MG, QD, ORAL
     Route: 048
     Dates: start: 20040115, end: 20040129
  2. FRUMIL (FUROSEMIDE, AMILORIDE HYDROCHLORIDE) [Concomitant]
  3. FUROSEMIDE [Concomitant]
  4. QUININE (QUININE) [Concomitant]
  5. ASPIRIN [Concomitant]
  6. LACTULOSE [Concomitant]

REACTIONS (1)
  - GAIT DISTURBANCE [None]
